FAERS Safety Report 6372906-8 (Version None)
Quarter: 2009Q3

REPORT INFORMATION
  Report Type: 
  Country: None (occurrence: None)
  Receive Date: 20090924
  Receipt Date: 20081205
  Transmission Date: 20100115
  Serious: No
  Sender: FDA-Public Use
  Company Number: US-ASTRAZENECA-2008UW27114

PATIENT
  Age: 20166 Day
  Sex: Female

DRUGS (1)
  1. SEROQUEL [Suspect]
     Dosage: UNKNOWN
     Route: 048
     Dates: end: 20081124

REACTIONS (3)
  - INSOMNIA [None]
  - IRRITABILITY [None]
  - NERVOUSNESS [None]
